FAERS Safety Report 9595350 (Version 1)
Quarter: 2013Q3

REPORT INFORMATION
  Report Type: Spontaneous
  Country: US (occurrence: None)
  Receive Date: 20130927
  Receipt Date: 20130927
  Transmission Date: 20140515
  Serious: Yes (Death)
  Sender: FDA-Public Use
  Company Number: CABO-13002829

PATIENT
  Age: 59 Year
  Sex: Female

DRUGS (1)
  1. COMETRIQ (CABOZANTINIB) CAPSULE [Suspect]
     Indication: RENAL CELL CARCINOMA
     Dates: start: 2013

REACTIONS (1)
  - Malignant neoplasm progression [None]
